FAERS Safety Report 7929039-6 (Version None)
Quarter: 2011Q4

REPORT INFORMATION
  Report Type: 
  Country: None (occurrence: None)
  Receive Date: 20111118
  Receipt Date: 20111111
  Transmission Date: 20120403
  Serious: Yes (Life-Threatening, Hospitalization)
  Sender: FDA-Public Use
  Company Number: US-AMGEN-USASP2011055118

PATIENT
  Age: 65 Year
  Sex: Male
  Weight: 107.7 kg

DRUGS (5)
  1. XGEVA [Suspect]
     Indication: METASTASES TO BONE
     Dosage: 120 MG, ONE TIME DOSE
     Route: 042
     Dates: start: 20110801, end: 20110801
  2. CALCIUM [Concomitant]
  3. ANTIARRHYTHMICS, CLASS I AND III [Concomitant]
     Indication: ATRIAL FIBRILLATION
  4. XGEVA [Suspect]
     Indication: OSTEOPOROSIS
  5. CALCIUM [Concomitant]
     Route: 042

REACTIONS (2)
  - INCORRECT ROUTE OF DRUG ADMINISTRATION [None]
  - HYPOCALCAEMIA [None]
